FAERS Safety Report 16242735 (Version 1)
Quarter: 2019Q2

REPORT INFORMATION
  Report Type: Spontaneous
  Country: US (occurrence: US)
  Receive Date: 20190426
  Receipt Date: 20190426
  Transmission Date: 20190711
  Serious: Yes (Hospitalization, Other)
  Sender: FDA-Public Use
  Company Number: US-LUPIN PHARMACEUTICALS INC.-2019-02496

PATIENT
  Age: 27 Year
  Sex: Female

DRUGS (3)
  1. OXYCODONE [Suspect]
     Active Substance: OXYCODONE
     Dosage: 60 MILLIGRAM, TAKING 60MG BY MOUTH AND 60MG VIA NASAL INHALATION FOR THE LAST TWO YEARS
     Route: 048
  2. OXYCODONE [Suspect]
     Active Substance: OXYCODONE
     Indication: CARPAL TUNNEL SYNDROME
     Dosage: 15 MILLIGRAM, BID
     Route: 065
  3. OXYCODONE [Suspect]
     Active Substance: OXYCODONE
     Dosage: 60 MILLIGRAM, TAKING 60MG BY MOUTH AND 60MG VIA NASAL INHALATION FOR THE LAST TWO YEARS
     Route: 055

REACTIONS (7)
  - Sinus tachycardia [Recovered/Resolved]
  - Hot flush [Recovered/Resolved]
  - Hypothalamic pituitary adrenal axis suppression [Recovered/Resolved]
  - Intentional product misuse [Recovered/Resolved]
  - Adrenal insufficiency [Recovered/Resolved]
  - Hypotension [Recovered/Resolved]
  - Oligomenorrhoea [Recovered/Resolved]
